FAERS Safety Report 12785556 (Version 1)
Quarter: 2016Q3

REPORT INFORMATION
  Report Type: Spontaneous
  Country: US (occurrence: US)
  Receive Date: 20160927
  Receipt Date: 20160927
  Transmission Date: 20161109
  Serious: Yes (Other)
  Sender: FDA-Public Use
  Company Number: US-PFIZER INC-2016452468

PATIENT
  Age: 21 Year
  Sex: Female

DRUGS (4)
  1. EPINEPHRINE. [Suspect]
     Active Substance: EPINEPHRINE
     Indication: HYPOTENSION
     Dosage: 2 MCG/MIN
     Route: 042
  2. MILRINONE [Suspect]
     Active Substance: MILRINONE
     Indication: HYPOTENSION
     Dosage: 0.5 MCG/KG/MIN
     Route: 042
  3. VASOPRESSIN. [Suspect]
     Active Substance: VASOPRESSIN
     Indication: HYPOTENSION
     Dosage: 0.04 UNITS/MIN
     Route: 042
  4. NOREPINEPHRINE BITARTRATE. [Suspect]
     Active Substance: NOREPINEPHRINE BITARTRATE
     Indication: HYPOTENSION
     Dosage: 10 MCG/MIN
     Route: 042

REACTIONS (1)
  - Abortion missed [Recovered/Resolved]
